FAERS Safety Report 13710227 (Version 2)
Quarter: 2017Q3

REPORT INFORMATION
  Report Type: Report from Study
  Country: US (occurrence: US)
  Receive Date: 20170703
  Receipt Date: 20170926
  Transmission Date: 20171127
  Serious: Yes (Hospitalization)
  Sender: FDA-Public Use
  Company Number: US-ACTELION-A-US2017-155812

PATIENT
  Age: 77 Year
  Sex: Female

DRUGS (5)
  1. LEVOTHYROXINE. [Concomitant]
     Active Substance: LEVOTHYROXINE
     Dosage: 100 MCG, QD
  2. NAPROXEN. [Concomitant]
     Active Substance: NAPROXEN
     Dosage: 250 MG, QD, PRN
  3. VENTOLIN [Concomitant]
     Active Substance: ALBUTEROL SULFATE
     Dosage: 90 MCG/ ACT 4-6HRS
     Route: 055
  4. METOPROLOL. [Concomitant]
     Active Substance: METOPROLOL
     Dosage: 25 MG, BID
     Dates: start: 20170117
  5. OPSUMIT [Suspect]
     Active Substance: MACITENTAN
     Indication: PULMONARY HYPERTENSION
     Dosage: 10 MG, QD
     Route: 048
     Dates: start: 20170505

REACTIONS (9)
  - Chronic obstructive pulmonary disease [Unknown]
  - Anxiety [Unknown]
  - Pulmonary arterial hypertension [Unknown]
  - Depression [Unknown]
  - Pulmonary oedema [Unknown]
  - Insomnia [Unknown]
  - Panic attack [Unknown]
  - Pneumonia [Unknown]
  - Delusional disorder, unspecified type [Unknown]

NARRATIVE: CASE EVENT DATE: 20170916
